FAERS Safety Report 16152352 (Version 5)
Quarter: 2019Q3

REPORT INFORMATION
  Report Type: Report from Study
  Country: JP (occurrence: JP)
  Receive Date: 20190403
  Receipt Date: 20190712
  Transmission Date: 20191004
  Serious: Yes (Hospitalization, Other)
  Sender: FDA-Public Use
  Company Number: JP-GLAXOSMITHKLINE-JP2019JPN057615

PATIENT
  Age: 68 Year
  Sex: Male

DRUGS (2)
  1. PREDNISOLONE TABLETS [Concomitant]
     Active Substance: PREDNISOLONE
     Indication: EOSINOPHILIC GRANULOMATOSIS WITH POLYANGIITIS
     Dosage: 5 MG, UNK
  2. MEPOLIZUMAB [Suspect]
     Active Substance: MEPOLIZUMAB
     Indication: EOSINOPHILIC GRANULOMATOSIS WITH POLYANGIITIS
     Dosage: 300 MG, EVERY FOUR MONTHS
     Route: 058
     Dates: start: 20180913, end: 20190418

REACTIONS (6)
  - Haematuria [Unknown]
  - Candida infection [Recovering/Resolving]
  - Mycotic endophthalmitis [Recovering/Resolving]
  - Bladder cancer [Unknown]
  - Vision blurred [Recovering/Resolving]
  - Neoplasm malignant [Unknown]

NARRATIVE: CASE EVENT DATE: 20190211
